FAERS Safety Report 5505726-4 (Version None)
Quarter: 2007Q4

REPORT INFORMATION
  Report Type: 
  Country: None (occurrence: None)
  Receive Date: 20071102
  Receipt Date: 20071030
  Transmission Date: 20080405
  Serious: Yes (Death)
  Sender: FDA-Public Use
  Company Number: US-SANOFI-SYNTHELABO-D01200707428

PATIENT
  Sex: Male
  Weight: 99.8 kg

DRUGS (11)
  1. CLOPIDOGREL [Suspect]
     Indication: ACUTE CORONARY SYNDROME
     Dosage: 300 MG (+PLACEBO) D1 FOLLOWED BY 75 MG (+PLACEBO) D2 TO D7; 75 MG FROM D8 TO 30
     Route: 048
  2. ZOLOFT [Concomitant]
  3. NOVOLOG [Concomitant]
  4. CARAFATE [Concomitant]
  5. NEXIUM [Concomitant]
  6. EPOGEN [Concomitant]
  7. XOPENEX [Concomitant]
  8. ZOCOR [Concomitant]
  9. LOPRESSOR [Concomitant]
  10. ASA HIGH DOSE [Concomitant]
     Indication: ACUTE CORONARY SYNDROME
     Dosage: AT LEAST 300 MG D1; 300-325 MG FROM D2 TO D30
     Route: 048
     Dates: start: 20071004
  11. CLOPIDOGREL [Suspect]
     Indication: ACUTE CORONARY SYNDROME
     Dosage: 600 MG LD D1 FOLLOWED BY 150 MG FROM D2 TO D7; 75 MG FROM D8 TO 30
     Route: 048
     Dates: start: 20071004

REACTIONS (1)
  - DEATH [None]
